FAERS Safety Report 7081362-6 (Version None)
Quarter: 2010Q4

REPORT INFORMATION
  Report Type: 
  Country: None (occurrence: None)
  Receive Date: 20101103
  Receipt Date: 20101022
  Transmission Date: 20110411
  Serious: Yes (Other)
  Sender: FDA-Public Use
  Company Number: PHHY2010CA71315

PATIENT
  Age: 5 Year
  Sex: Female

DRUGS (2)
  1. TEGRETOL-XR [Suspect]
     Indication: EPILEPSY
     Dosage: 200 MG, BID
     Dates: start: 20100908
  2. TEGRETOL-XR [Suspect]
     Dosage: 300 MG, BID

REACTIONS (2)
  - EYE DISORDER [None]
  - VISUAL ACUITY REDUCED [None]
